FAERS Safety Report 16981544 (Version 1)
Quarter: 2019Q4

REPORT INFORMATION
  Report Type: Spontaneous
  Country: US (occurrence: US)
  Receive Date: 20191101
  Receipt Date: 20191101
  Transmission Date: 20200122
  Serious: No
  Sender: FDA-Public Use
  Company Number: US-AMGEN-USASP2019178913

PATIENT
  Age: 78 Year
  Sex: Female

DRUGS (8)
  1. VITAMIN D3 [Concomitant]
     Active Substance: CHOLECALCIFEROL
     Dosage: 1000 INTERNATIONAL UNIT, QD
  2. BIOTIN [Concomitant]
     Active Substance: BIOTIN
  3. PROLIA [Suspect]
     Active Substance: DENOSUMAB
     Indication: OSTEOPOROSIS POSTMENOPAUSAL
     Dosage: 60 MILLIGRAM
     Route: 065
     Dates: start: 2019
  4. LEVOTHYROXINE. [Concomitant]
     Active Substance: LEVOTHYROXINE
     Dosage: 50 MICROGRAM, QD
  5. LEXAPRO [Concomitant]
     Active Substance: ESCITALOPRAM OXALATE
     Dosage: 5 MILLIGRAM
  6. B COMPLEX WITH VITAMIN C [ASCORBIC ACID;CALCIUM PANTOTHENATE;NICOTINAM [Concomitant]
  7. SIMVASTATIN. [Concomitant]
     Active Substance: SIMVASTATIN
     Dosage: 20 MILLIGRAM, QD
  8. OSTEO BI-FLEX [CHONDROITIN SULFATE;GLUCOSAMINE HYDROCHLORIDE] [Concomitant]
     Indication: ARTHROPATHY

REACTIONS (2)
  - Osteoarthritis [Unknown]
  - Back pain [Recovered/Resolved]

NARRATIVE: CASE EVENT DATE: 2019
